FAERS Safety Report 8496771-8 (Version None)
Quarter: 2012Q3

REPORT INFORMATION
  Report Type: 
  Country: None (occurrence: None)
  Receive Date: 20120709
  Receipt Date: 20120625
  Transmission Date: 20120928
  Serious: Yes (Other)
  Sender: FDA-Public Use
  Company Number: JP-ROCHE-1084710

PATIENT
  Sex: Female

DRUGS (12)
  1. MAGMITT [Concomitant]
     Indication: CONSTIPATION
     Route: 048
     Dates: start: 20080523
  2. ACTEMRA [Suspect]
     Indication: RHEUMATOID ARTHRITIS
     Route: 041
     Dates: start: 20080523, end: 20080724
  3. AZULFIDINE [Concomitant]
     Indication: RHEUMATOID ARTHRITIS
     Route: 048
  4. ACTEMRA [Suspect]
     Route: 041
     Dates: start: 20080822, end: 20091112
  5. ACTEMRA [Suspect]
     Route: 041
     Dates: start: 20100114
  6. CELEBREX [Concomitant]
     Indication: RHEUMATOID ARTHRITIS
     Route: 048
     Dates: start: 20080523
  7. PREDNISOLONE [Concomitant]
     Route: 048
     Dates: start: 20080114
  8. MUCODYNE [Concomitant]
     Indication: BRONCHITIS CHRONIC
     Route: 048
     Dates: start: 20080523
  9. EVISTA [Concomitant]
     Indication: PROPHYLAXIS
     Route: 048
  10. PREDNISOLONE [Concomitant]
     Indication: RHEUMATOID ARTHRITIS
     Route: 048
     Dates: end: 20081113
  11. MUCOSTA [Concomitant]
     Indication: PROPHYLAXIS
     Route: 048
     Dates: start: 20080523
  12. RIMATIL [Concomitant]
     Indication: RHEUMATOID ARTHRITIS
     Route: 048
     Dates: start: 19890101

REACTIONS (3)
  - FALL [None]
  - HUMERUS FRACTURE [None]
  - TRIGEMINAL NEURALGIA [None]
